FAERS Safety Report 15808693 (Version 1)
Quarter: 2019Q1

REPORT INFORMATION
  Report Type: Report from Study
  Country: MX (occurrence: MX)
  Receive Date: 20190110
  Receipt Date: 20190110
  Transmission Date: 20190417
  Serious: Yes (Death, Other)
  Sender: FDA-Public Use
  Company Number: PHHY2018MX095808

PATIENT
  Age: 76 Year
  Sex: Female
  Weight: 76 kg

DRUGS (7)
  1. REVOLADE [Suspect]
     Active Substance: ELTROMBOPAG
     Indication: PLATELET COUNT DECREASED
     Dosage: 1 DF, QOD (50 MG, 1 DAY YES AND 1 DAY NO)
     Route: 048
     Dates: start: 20180515
  2. REVOLADE [Suspect]
     Active Substance: ELTROMBOPAG
     Dosage: 2 DF (50 MG), QD
     Route: 048
     Dates: start: 20180516, end: 20180618
  3. REVOLADE [Suspect]
     Active Substance: ELTROMBOPAG
     Dosage: 1 DF (50 MG), QD
     Route: 048
  4. REVOLADE [Suspect]
     Active Substance: ELTROMBOPAG
     Dosage: 1 DF (50 MG), QD
     Route: 048
     Dates: start: 20180915
  5. REVOLADE [Suspect]
     Active Substance: ELTROMBOPAG
     Indication: LEUKAEMIA
     Dosage: 2 DF (50 MG), QD
     Route: 048
     Dates: start: 2018
  6. REVOLADE [Suspect]
     Active Substance: ELTROMBOPAG
     Dosage: 1 DF (ORAL), QD
     Route: 048
     Dates: start: 20180619, end: 20180822
  7. REVOLADE [Suspect]
     Active Substance: ELTROMBOPAG
     Dosage: 1 DF (50 MG), QD (1 DAY YES AND 1 DAY NO)
     Route: 048
     Dates: start: 20180823, end: 20180914

REACTIONS (7)
  - Myocardial infarction [Fatal]
  - Inappropriate schedule of product administration [Unknown]
  - Leukaemia [Unknown]
  - Body temperature abnormal [Unknown]
  - Product prescribing error [Unknown]
  - Localised infection [Not Recovered/Not Resolved]
  - Platelet count abnormal [Unknown]

NARRATIVE: CASE EVENT DATE: 201805
